FAERS Safety Report 8320034 (Version 7)
Quarter: 2013Q1

REPORT INFORMATION
  Report Type: Spontaneous
  Country: US (occurrence: US)
  Receive Date: 20120103
  Receipt Date: 20130121
  Transmission Date: 20140127
  Serious: Yes (Hospitalization, Other)
  Sender: FDA-Public Use
  Company Number: US-ELI_LILLY_AND_COMPANY-US201112007206

PATIENT
  Age: 65 None
  Sex: Female

DRUGS (19)
  1. FORTEO [Suspect]
     Indication: OSTEOPOROSIS
     Dosage: 20 UG, QD
     Route: 065
     Dates: start: 201106
  2. FORTEO [Suspect]
     Dosage: 20 UG, QD
     Route: 065
  3. FORTEO [Suspect]
     Dosage: 20 UG, QD
     Route: 065
  4. FORTEO [Suspect]
     Dosage: 20 UG, QD
  5. FORTEO [Suspect]
     Dosage: 20 UG, QD
  6. FORTEO [Suspect]
     Dosage: 20 UG, QD
     Route: 065
  7. ATENOLOL [Concomitant]
     Dosage: 25 MG, QD
  8. PRILOSEC [Concomitant]
     Dosage: UNK, QD
  9. FISH OIL [Concomitant]
  10. CALCIUM 600 PLUS VITAMIN D [Concomitant]
  11. MULTIVITAMIN [Concomitant]
  12. ASPIRIN [Concomitant]
     Dosage: 81 MG, UNK
  13. FERROUS SULFATE [Concomitant]
     Indication: ANAEMIA
  14. IRON [Concomitant]
  15. CALTRATE                           /00751519/ [Concomitant]
  16. VANCOMYCIN [Concomitant]
  17. PERCOCET [Concomitant]
  18. ACTONEL [Concomitant]
  19. ANTIBIOTICS [Concomitant]

REACTIONS (3)
  - Femur fracture [Unknown]
  - Hip surgery [Unknown]
  - Pain [Unknown]
